FAERS Safety Report 6924195-0 (Version None)
Quarter: 2010Q3

REPORT INFORMATION
  Report Type: 
  Country: None (occurrence: None)
  Receive Date: 20100812
  Receipt Date: 20100812
  Transmission Date: 20110219
  Serious: No
  Sender: FDA-Public Use
  Company Number: None

PATIENT
  Age: 72 Year
  Sex: Male
  Weight: 99.7913 kg

DRUGS (2)
  1. AVANDIA [Suspect]
     Indication: DIABETES MELLITUS
     Dosage: ONE -1- TABLET DAILY, 2 YEARS MORE OR LESS
  2. ACTOS [Suspect]
     Indication: DIABETES MELLITUS
     Dosage: ONE -1- TABLET DAILY
     Dates: start: 20100501, end: 20100811

REACTIONS (1)
  - UNEVALUABLE EVENT [None]
